FAERS Safety Report 11360209 (Version 1)
Quarter: 2015Q3

REPORT INFORMATION
  Report Type: Spontaneous
  Country: US (occurrence: US)
  Receive Date: 20150810
  Receipt Date: 20150810
  Transmission Date: 20151125
  Serious: Yes (Hospitalization)
  Sender: FDA-Public Use
  Company Number: US-TARO PHARMACEUTICALS USA.,INC-2015SUN01770

PATIENT
  Age: 69 Year
  Sex: Male
  Weight: 76 kg

DRUGS (19)
  1. AMIODARONE [Suspect]
     Active Substance: AMIODARONE
     Dosage: 200 MG, BID
     Route: 065
     Dates: start: 2010, end: 2013
  2. IPRATROPIM/ ALBUTEROL [Concomitant]
     Dosage: 2 PUFFS, BID
  3. ACETAMINOPHEN. [Concomitant]
     Active Substance: ACETAMINOPHEN
     Dosage: 325 MG, (EVERY 6 HOURS AS NEEDED)
  4. ASPIRIN. [Concomitant]
     Active Substance: ASPIRIN
     Dosage: 325 MG, BID
     Route: 065
  5. BISACODYL. [Concomitant]
     Active Substance: BISACODYL
     Dosage: 10 MG, OD (AT BED TIME)
  6. OLANZAPINE. [Concomitant]
     Active Substance: OLANZAPINE
     Dosage: 10 MG, OD (AT BED TIME)
  7. LOPERAMIDE [Concomitant]
     Active Substance: LOPERAMIDE
     Dosage: 2 MG, (EVERY 6 HOURS AS NEEDED)
  8. CLONAZEPAM. [Concomitant]
     Active Substance: CLONAZEPAM
     Dosage: 1 MG, OD (AT BED TIME)
     Route: 065
  9. GABAPENTIN. [Concomitant]
     Active Substance: GABAPENTIN
     Dosage: 300 MG, UNK
  10. MULTIVITAMIN [Concomitant]
     Active Substance: VITAMINS
     Dosage: 1 DF, OD
  11. PANTOPRAZOLE [Concomitant]
     Active Substance: PANTOPRAZOLE SODIUM
     Dosage: 40 MG, QD
  12. ALBUTEROL NEBULIZED [Concomitant]
     Active Substance: ALBUTEROL
  13. AMIODARONE [Suspect]
     Active Substance: AMIODARONE
     Dosage: 200 MG, BID
     Route: 065
     Dates: start: 2013, end: 2014
  14. DULOXETINE. [Concomitant]
     Active Substance: DULOXETINE
     Dosage: 20 MG, BID
     Route: 065
  15. LEVOTHYROXINE. [Concomitant]
     Active Substance: LEVOTHYROXINE
     Dosage: 250 MCG, OD
  16. TAMSULOSIN [Concomitant]
     Active Substance: TAMSULOSIN
     Dosage: 0.4 MG, OD
  17. PRAVASTATIN [Concomitant]
     Active Substance: PRAVASTATIN\PRAVASTATIN SODIUM
     Dosage: 40 MG, OD
  18. LACTULOSE. [Concomitant]
     Active Substance: LACTULOSE
     Dosage: 10MG/15ML
  19. AMIODARONE [Suspect]
     Active Substance: AMIODARONE
     Indication: WRONG DRUG ADMINISTERED
     Dosage: 100 MG, BID
     Route: 065
     Dates: start: 2003, end: 2010

REACTIONS (5)
  - Dizziness postural [Unknown]
  - Transcription medication error [Recovered/Resolved]
  - Wrong drug administered [Recovered/Resolved]
  - Fall [Unknown]
  - Hip fracture [Unknown]

NARRATIVE: CASE EVENT DATE: 2003
